FAERS Safety Report 5566844-8 (Version None)
Quarter: 2007Q4

REPORT INFORMATION
  Report Type: 
  Country: None (occurrence: None)
  Receive Date: 20071219
  Receipt Date: 20071213
  Transmission Date: 20080405
  Serious: Yes (Hospitalization)
  Sender: FDA-Public Use
  Company Number: US-GILEAD-2007-0014610

PATIENT
  Sex: Female

DRUGS (2)
  1. LETAIRIS [Suspect]
     Dates: start: 20071107, end: 20071119
  2. LETAIRIS [Suspect]
     Dates: start: 20071001, end: 20071106

REACTIONS (2)
  - ATRIAL FIBRILLATION [None]
  - HYPOXIA [None]
